FAERS Safety Report 7003236-9 (Version None)
Quarter: 2010Q3

REPORT INFORMATION
  Report Type: 
  Country: None (occurrence: None)
  Receive Date: 20100920
  Receipt Date: 20100913
  Transmission Date: 20110219
  Serious: Yes (Hospitalization, Other)
  Sender: FDA-Public Use
  Company Number: PHHO2010KR13478

PATIENT
  Sex: Male
  Weight: 64.8 kg

DRUGS (2)
  1. AFINITOR [Suspect]
     Indication: GASTRIC CANCER
     Dosage: 5 MG
     Route: 048
     Dates: start: 20100720, end: 20100830
  2. XELODA [Suspect]
     Indication: GASTRIC CANCER
     Dosage: 1150 MG
     Route: 048
     Dates: start: 20100720, end: 20100830

REACTIONS (6)
  - ANAEMIA [None]
  - ANGIODYSPLASIA [None]
  - ELECTROCAUTERISATION [None]
  - GASTRIC HAEMORRHAGE [None]
  - GENERAL PHYSICAL CONDITION ABNORMAL [None]
  - MELAENA [None]
